FAERS Safety Report 12231329 (Version 1)
Quarter: 2016Q2

REPORT INFORMATION
  Report Type: Spontaneous
  Country: US (occurrence: US)
  Receive Date: 20160401
  Receipt Date: 20160401
  Transmission Date: 20160815
  Serious: Yes (Other)
  Sender: FDA-Public Use
  Company Number: US-ELI_LILLY_AND_COMPANY-US201603008166

PATIENT
  Sex: Female

DRUGS (3)
  1. AMARYL [Concomitant]
     Active Substance: GLIMEPIRIDE
  2. HUMULIN R [Suspect]
     Active Substance: INSULIN HUMAN
     Indication: INSULIN-REQUIRING TYPE 2 DIABETES MELLITUS
     Dosage: UNK, UNKNOWN
     Route: 065
     Dates: start: 2014, end: 2015
  3. INSULIN [Suspect]
     Active Substance: INSULIN NOS
     Indication: INSULIN-REQUIRING TYPE 2 DIABETES MELLITUS
     Dosage: UNK, UNKNOWN
     Route: 065

REACTIONS (7)
  - Ascites [Unknown]
  - Gastrointestinal disorder [Unknown]
  - Pain [Unknown]
  - Drug hypersensitivity [Not Recovered/Not Resolved]
  - Liver injury [Not Recovered/Not Resolved]
  - Abdominal distension [Unknown]
  - Spleen disorder [Unknown]
